FAERS Safety Report 19911888 (Version 1)
Quarter: 2021Q4

REPORT INFORMATION
  Report Type: Spontaneous
  Country: GB (occurrence: GB)
  Receive Date: 20211004
  Receipt Date: 20211004
  Transmission Date: 20220303
  Serious: Yes (Disabling, Other)
  Sender: FDA-Public Use
  Company Number: GB-AMGEN-GBRSP2021148955

PATIENT
  Age: 84 Year
  Sex: Female
  Weight: 69.85 kg

DRUGS (7)
  1. PROLIA [Suspect]
     Active Substance: DENOSUMAB
     Indication: Osteoporosis
     Dosage: 60 UNK
     Route: 051
     Dates: start: 20140301
  2. ATORVASTATIN [Concomitant]
     Active Substance: ATORVASTATIN
  3. ETANERCEPT [Concomitant]
     Active Substance: ETANERCEPT
  4. CLOPIDOGREL [Concomitant]
     Active Substance: CLOPIDOGREL BISULFATE
  5. LEVOTHYROXINE [Concomitant]
     Active Substance: LEVOTHYROXINE
  6. PERINDOPRIL [Concomitant]
     Active Substance: PERINDOPRIL
  7. ERGOCALCIFEROL [Concomitant]
     Active Substance: ERGOCALCIFEROL

REACTIONS (5)
  - Osteonecrosis [Not Recovered/Not Resolved]
  - Contraindicated product administered [Unknown]
  - Tinnitus [Unknown]
  - Ear pain [Unknown]
  - Hyperacusis [Unknown]

NARRATIVE: CASE EVENT DATE: 20170101
